FAERS Safety Report 8268038 (Version 5)
Quarter: 2013Q2

REPORT INFORMATION
  Report Type: Report from Study
  Country: JP (occurrence: JP)
  Receive Date: 20111129
  Receipt Date: 20130403
  Transmission Date: 20140414
  Serious: Yes (Hospitalization, Disabling, Other)
  Sender: FDA-Public Use
  Company Number: JP-AMGEN-JPNCT2011062202

PATIENT
  Age: 76 Year
  Sex: Female
  Weight: 49 kg

DRUGS (14)
  1. ROMIPLOSTIM - KHK [Suspect]
     Indication: IDIOPATHIC THROMBOCYTOPENIC PURPURA
     Dosage: 1 MUG/KG, QWK
     Route: 058
     Dates: start: 20110728
  2. ROMIPLOSTIM - KHK [Suspect]
     Dosage: 2 MUG/KG, QWK
     Route: 058
     Dates: start: 20110811
  3. ROMIPLOSTIM - KHK [Suspect]
     Dosage: 3 MUG/KG, QWK
     Route: 058
     Dates: start: 20110818
  4. ROMIPLOSTIM - KHK [Suspect]
     Dosage: 4 MUG/KG, QWK
     Route: 058
     Dates: start: 20110825
  5. ROMIPLOSTIM - KHK [Suspect]
     Dosage: 5 MUG/KG, QWK
     Route: 058
     Dates: start: 20110901
  6. ROMIPLOSTIM - KHK [Suspect]
     Dosage: 6 MUG/KG, QWK
     Route: 058
     Dates: start: 20110908, end: 20110914
  7. REVOLADE [Suspect]
     Indication: IDIOPATHIC THROMBOCYTOPENIC PURPURA
     Dosage: 25 MG, QD
     Route: 048
     Dates: start: 20110714, end: 20110727
  8. PREDNISOLONE [Concomitant]
     Indication: IDIOPATHIC THROMBOCYTOPENIC PURPURA
     Dosage: UNK UNK, QD
     Route: 048
     Dates: start: 20110715
  9. MICARDIS [Concomitant]
     Indication: HYPERTENSION
     Dosage: UNK
     Route: 048
  10. TAKEPRON [Concomitant]
     Indication: PROPHYLAXIS
     Dosage: UNK
     Route: 048
  11. CRAVIT [Concomitant]
     Indication: PROPHYLAXIS
     Dosage: UNK
     Route: 048
  12. MYCOSYST [Concomitant]
     Indication: PROPHYLAXIS
     Dosage: UNK
     Route: 048
  13. VALIXA [Concomitant]
     Indication: CYTOMEGALOVIRUS INFECTION
     Dosage: UNK
     Route: 048
  14. PLATELETS [Concomitant]
     Dosage: UNK
     Dates: start: 20110714, end: 20120730

REACTIONS (3)
  - White blood cell count increased [Recovering/Resolving]
  - Femoral artery occlusion [Recovered/Resolved with Sequelae]
  - Platelet count decreased [Unknown]
